FAERS Safety Report 11674296 (Version 1)
Quarter: 2015Q4

REPORT INFORMATION
  Report Type: Not Available
  Country: ES (occurrence: ES)
  Receive Date: 20151028
  Receipt Date: 20151028
  Transmission Date: 20160304
  Serious: Yes (Other)
  Sender: FDA-Public Use
  Company Number: ES-MUNDIPHARMA DS AND PHARMACOVIGILANCE-GBR-2015-0031732

PATIENT
  Age: 79 Year
  Sex: Female

DRUGS (1)
  1. TARGIN 10MG/5MG COMPRIMIDOS DE LIBERACION PROLONGADA [Suspect]
     Active Substance: NALOXONE HYDROCHLORIDE\OXYCODONE HYDROCHLORIDE
     Indication: PRODUCT USED FOR UNKNOWN INDICATION
     Dosage: UNK UNK, Q8H
     Route: 048
     Dates: start: 201509, end: 20150916

REACTIONS (5)
  - Somnolence [Unknown]
  - Constipation [Unknown]
  - Incorrect dose administered [Unknown]
  - Myoclonus [Unknown]
  - Hallucination [Unknown]

NARRATIVE: CASE EVENT DATE: 20150916
